FAERS Safety Report 10478702 (Version 2)
Quarter: 2014Q4

REPORT INFORMATION
  Report Type: Spontaneous
  Country: CN (occurrence: CN)
  Receive Date: 20140926
  Receipt Date: 20141006
  Transmission Date: 20150528
  Serious: Yes (Death, Hospitalization)
  Sender: FDA-Public Use
  Company Number: PHHY2014CN125753

PATIENT
  Age: 65 Year
  Sex: Male

DRUGS (7)
  1. IMIPENEM AND CILASTATIN [Concomitant]
     Active Substance: CILASTATIN SODIUM\IMIPENEM
     Indication: ANTI-INFECTIVE THERAPY
     Dosage: 2 G, Q8H
  2. ETIMICIN [Concomitant]
     Indication: ANTI-INFECTIVE THERAPY
     Dosage: 0.2 G, UNK
  3. RUIBAI [Concomitant]
     Indication: ANTI-INFECTIVE THERAPY
  4. THIAMAZOLE [Suspect]
     Active Substance: METHIMAZOLE
     Indication: PYREXIA
  5. THIAMAZOLE [Suspect]
     Active Substance: METHIMAZOLE
     Indication: HYPERTHYROIDISM
     Dosage: 5 MG, TID
     Route: 048
  6. CEFOTAXIME [Suspect]
     Active Substance: CEFOTAXIME\CEFOTAXIME SODIUM
     Indication: ANTI-INFECTIVE THERAPY
     Dosage: 2 G/TIME, BID
     Route: 065
  7. RIBAVIRIN. [Suspect]
     Active Substance: RIBAVIRIN
     Indication: ANTI-INFECTIVE THERAPY
     Dosage: 0.5 G/TIME IN 500 ML OF 5% GLUCOSE SOLUTION FOR INJECTION
     Route: 065

REACTIONS (11)
  - Reflux laryngitis [Unknown]
  - Drug ineffective [Unknown]
  - Pyrexia [Unknown]
  - Malaise [Unknown]
  - Mental disorder [Unknown]
  - Breath sounds abnormal [Unknown]
  - Chest discomfort [Unknown]
  - Septic shock [Fatal]
  - Decreased appetite [Unknown]
  - Pneumonia klebsiella [Unknown]
  - Agranulocytosis [Unknown]

NARRATIVE: CASE EVENT DATE: 20120814
